FAERS Safety Report 14610343 (Version 1)
Quarter: 2018Q1

REPORT INFORMATION
  Report Type: Spontaneous
  Country: GB (occurrence: GB)
  Receive Date: 20180307
  Receipt Date: 20180307
  Transmission Date: 20180509
  Serious: Yes (Hospitalization)
  Sender: FDA-Public Use
  Company Number: GB-TEVA-2018-GB-865557

PATIENT
  Age: 89 Year
  Sex: Female

DRUGS (12)
  1. EZETIMIBE. [Interacting]
     Active Substance: EZETIMIBE
     Indication: HYPERCHOLESTEROLAEMIA
     Dosage: 10 MILLIGRAM DAILY;
     Route: 048
     Dates: end: 20180108
  2. AMOXICILLIN. [Concomitant]
     Active Substance: AMOXICILLIN
  3. OMEPRAZOLE. [Concomitant]
     Active Substance: OMEPRAZOLE
  4. CODEINE [Concomitant]
     Active Substance: CODEINE
  5. PARACETAMOL [Concomitant]
     Active Substance: ACETAMINOPHEN
  6. RAMIPRIL. [Concomitant]
     Active Substance: RAMIPRIL
  7. ATORVASTATIN [Suspect]
     Active Substance: ATORVASTATIN
     Indication: HYPERCHOLESTEROLAEMIA
     Route: 048
     Dates: end: 20180108
  8. CLARITHROMYCIN. [Concomitant]
     Active Substance: CLARITHROMYCIN
  9. DALTEPARIN [Concomitant]
     Active Substance: DALTEPARIN
  10. ESOMEPRAZOLE [Concomitant]
     Active Substance: ESOMEPRAZOLE
  11. NIFEDIPINE. [Concomitant]
     Active Substance: NIFEDIPINE
  12. LINAGLIPTIN [Concomitant]
     Active Substance: LINAGLIPTIN

REACTIONS (7)
  - Drug interaction [Unknown]
  - Mobility decreased [Unknown]
  - Liver function test abnormal [Unknown]
  - Jaundice [Unknown]
  - Fall [Recovering/Resolving]
  - Pain in extremity [Unknown]
  - Rhabdomyolysis [Not Recovered/Not Resolved]

NARRATIVE: CASE EVENT DATE: 2016
